FAERS Safety Report 20702116 (Version 1)
Quarter: 2022Q2

REPORT INFORMATION
  Report Type: Spontaneous
  Country: FR (occurrence: FR)
  Receive Date: 20220412
  Receipt Date: 20220412
  Transmission Date: 20220721
  Serious: Yes (Hospitalization, Other)
  Sender: FDA-Public Use
  Company Number: FR-DENTSPLY-2022SCDP000080

PATIENT
  Age: 29 Year
  Sex: Female
  Weight: 97 kg

DRUGS (4)
  1. EPINEPHRINE BITARTRATE\LIDOCAINE HYDROCHLORIDE [Suspect]
     Active Substance: EPINEPHRINE BITARTRATE\LIDOCAINE HYDROCHLORIDE
     Indication: Epidural injection
     Dosage: 3 MILLILITER
     Route: 008
     Dates: start: 20180819, end: 20180819
  2. ROPIVACAINE HYDROCHLORIDE [Suspect]
     Active Substance: ROPIVACAINE HYDROCHLORIDE
     Indication: Epidural injection
     Dosage: 40 MILLILITER OF 2 MG/ML NAROPEINE SOLUTION FOR INJECTION IN AMPOULE
     Route: 008
     Dates: start: 20180819, end: 20180819
  3. SUFENTANIL [Suspect]
     Active Substance: SUFENTANIL
     Indication: Epidural injection
     Dosage: 3 MILLILITER
     Route: 008
     Dates: start: 20180819, end: 20180819
  4. SYNTOCINON [Suspect]
     Active Substance: OXYTOCIN
     Indication: Delivery
     Dosage: 5 INTERNATIONAL UNIT OF 5 U.I/1 ML SYNTOCINON SOLUTION FOR INJECTION IN AMPOULE
     Route: 040
     Dates: start: 20180819, end: 20180819

REACTIONS (10)
  - Cauda equina syndrome [None]
  - Hypertension [Recovered/Resolved]
  - Vision blurred [None]
  - Hypoaesthesia [None]
  - Tinnitus [None]
  - Joint dislocation [None]
  - Hypogeusia [None]
  - Parosmia [None]
  - Disturbance in attention [None]
  - Memory impairment [None]

NARRATIVE: CASE EVENT DATE: 20180801
